FAERS Safety Report 8001940-7 (Version None)
Quarter: 2011Q4

REPORT INFORMATION
  Report Type: 
  Country: None (occurrence: None)
  Receive Date: 20111220
  Receipt Date: 20111130
  Transmission Date: 20120403
  Serious: Yes (Hospitalization)
  Sender: FDA-Public Use
  Company Number: JPI-P-018546

PATIENT
  Age: 41 Year
  Sex: Female
  Weight: 60.782 kg

DRUGS (14)
  1. FLUOXETINE HYDROCHLORIDE [Suspect]
     Indication: DEPRESSION
     Dosage: 40 MG (40 MG, 1 IN 1 D), ORAL; 80 MG (80 MG, 1 IN 1 D), ORAL; (DOSE LOWERED), ORAL
     Dates: start: 20111101, end: 20111101
  2. FLUOXETINE HYDROCHLORIDE [Suspect]
     Indication: DEPRESSION
     Dosage: 40 MG (40 MG, 1 IN 1 D), ORAL; 80 MG (80 MG, 1 IN 1 D), ORAL; (DOSE LOWERED), ORAL
     Dates: start: 20111001, end: 20111101
  3. FLUOXETINE HYDROCHLORIDE [Suspect]
     Indication: DEPRESSION
     Dosage: 40 MG (40 MG, 1 IN 1 D), ORAL; 80 MG (80 MG, 1 IN 1 D), ORAL; (DOSE LOWERED), ORAL
     Dates: start: 20110901, end: 20111001
  4. XYREM [Suspect]
     Indication: NARCOLEPSY
     Dosage: (, 2 IN 1 DAY), ORAL; 8 GM (4 GM, 2 IN 1 D), ORAL; 8 GM (4 GM, 2 IN 1 D), ORAL
     Route: 048
     Dates: start: 20080301
  5. XYREM [Suspect]
     Indication: SOMNOLENCE
     Dosage: (, 2 IN 1 DAY), ORAL; 8 GM (4 GM, 2 IN 1 D), ORAL; 8 GM (4 GM, 2 IN 1 D), ORAL
     Route: 048
     Dates: start: 20080301
  6. XYREM [Suspect]
     Indication: NARCOLEPSY
     Dosage: (, 2 IN 1 DAY), ORAL; 8 GM (4 GM, 2 IN 1 D), ORAL; 8 GM (4 GM, 2 IN 1 D), ORAL
     Route: 048
     Dates: start: 20111126
  7. XYREM [Suspect]
     Indication: SOMNOLENCE
     Dosage: (, 2 IN 1 DAY), ORAL; 8 GM (4 GM, 2 IN 1 D), ORAL; 8 GM (4 GM, 2 IN 1 D), ORAL
     Route: 048
     Dates: start: 20111126
  8. XYREM [Suspect]
     Indication: NARCOLEPSY
     Dosage: (, 2 IN 1 DAY), ORAL; 8 GM (4 GM, 2 IN 1 D), ORAL; 8 GM (4 GM, 2 IN 1 D), ORAL
     Route: 048
     Dates: end: 20111123
  9. XYREM [Suspect]
     Indication: SOMNOLENCE
     Dosage: (, 2 IN 1 DAY), ORAL; 8 GM (4 GM, 2 IN 1 D), ORAL; 8 GM (4 GM, 2 IN 1 D), ORAL
     Route: 048
     Dates: end: 20111123
  10. LEUPROLIDE ACETATE [Concomitant]
  11. ESZOPICLONE [Concomitant]
  12. LEVOTHYROXINE SODIUM [Concomitant]
  13. NORETHINDRONE ACETATE [Concomitant]
  14. CABERGOLINE [Concomitant]

REACTIONS (5)
  - CONDITION AGGRAVATED [None]
  - DEPRESSION [None]
  - ANXIETY [None]
  - MALAISE [None]
  - CONVULSION [None]
